FAERS Safety Report 6441574-9 (Version None)
Quarter: 2009Q4

REPORT INFORMATION
  Report Type: 
  Country: None (occurrence: None)
  Receive Date: 20091116
  Receipt Date: 20091102
  Transmission Date: 20100525
  Serious: Yes (Hospitalization)
  Sender: FDA-Public Use
  Company Number: AR-AMGEN-US373374

PATIENT
  Sex: Female
  Weight: 78 kg

DRUGS (6)
  1. ENBREL [Suspect]
     Indication: RHEUMATOID ARTHRITIS
     Route: 058
     Dates: start: 20080701, end: 20090801
  2. ENBREL [Suspect]
     Route: 058
     Dates: start: 20090901
  3. IBUPROFEN [Concomitant]
     Dosage: 1 TABLET AS NEEDED FOR PAIN
     Route: 048
  4. CLONAZEPAM [Concomitant]
     Route: 048
  5. METHOTREXATE [Concomitant]
     Route: 048
  6. CITALOPRAM [Concomitant]
     Route: 048

REACTIONS (2)
  - BENIGN NEOPLASM OF THYROID GLAND [None]
  - BENIGN SALIVARY GLAND NEOPLASM [None]
